FAERS Safety Report 6423551-7 (Version None)
Quarter: 2009Q4

REPORT INFORMATION
  Report Type: 
  Country: None (occurrence: None)
  Receive Date: 20091102
  Receipt Date: 20090814
  Transmission Date: 20100525
  Serious: No
  Sender: FDA-Public Use
  Company Number: A0802307A

PATIENT
  Age: 76 Year
  Sex: Female

DRUGS (4)
  1. RYTHMOL SR [Suspect]
     Dosage: 325MG TWICE PER DAY
     Route: 048
     Dates: start: 20090518, end: 20090701
  2. ASPIRIN [Concomitant]
  3. BLOOD THINNER [Concomitant]
  4. UNKNOWN MEDICATION [Concomitant]
     Indication: GOUT

REACTIONS (1)
  - MALAISE [None]
